FAERS Safety Report 5259419-1 (Version None)
Quarter: 2007Q1

REPORT INFORMATION
  Report Type: 
  Country: None (occurrence: None)
  Receive Date: 20070308
  Receipt Date: 20070301
  Transmission Date: 20070707
  Serious: Yes (Hospitalization)
  Sender: FDA-Public Use
  Company Number: IT-ABBOTT-06P-083-0333824-00

PATIENT
  Sex: Female
  Weight: 61 kg

DRUGS (9)
  1. HUMIRA [Suspect]
     Indication: RHEUMATOID ARTHRITIS
     Route: 058
     Dates: start: 20051008, end: 20060506
  2. METHOTREXATE [Concomitant]
     Indication: RHEUMATOID ARTHRITIS
     Dates: start: 20010101
  3. METHYLPREDNISOLONE 16MG TAB [Concomitant]
     Indication: RHEUMATOID ARTHRITIS
     Dates: start: 20010101
  4. ATENOLOL [Concomitant]
     Indication: ARRHYTHMIA
  5. CALCIUM FOLINATE [Concomitant]
     Indication: RHEUMATOID ARTHRITIS
     Dates: start: 20010101
  6. PAROXETINE HYDROCHLORIDE [Concomitant]
     Indication: ANXIETY
  7. PAROXETINE HYDROCHLORIDE [Concomitant]
     Indication: DEPRESSION
  8. VERTISER [Concomitant]
     Indication: VERTIGO
     Dates: start: 20050801
  9. CALCITRIOL [Concomitant]
     Indication: OSTEOPOROSIS PROPHYLAXIS

REACTIONS (3)
  - LOSS OF CONSCIOUSNESS [None]
  - PROGRESSIVE MULTIFOCAL LEUKOENCEPHALOPATHY [None]
  - VERTIGO [None]
